FAERS Safety Report 9458351 (Version 1)
Quarter: 2013Q3

REPORT INFORMATION
  Report Type: Spontaneous
  Country: US (occurrence: US)
  Receive Date: 20130814
  Receipt Date: 20130814
  Transmission Date: 20140515
  Serious: Yes (Other)
  Sender: FDA-Public Use
  Company Number: US-TEVA-425213USA

PATIENT
  Age: 53 Year
  Sex: Female

DRUGS (2)
  1. PARAGARD 380A [Suspect]
     Indication: CONTRACEPTION
     Route: 015
     Dates: start: 20130520
  2. LISINOPRIL [Concomitant]

REACTIONS (3)
  - Device dislocation [Unknown]
  - Device expulsion [Unknown]
  - Medical device complication [Unknown]
